FAERS Safety Report 6082661-7 (Version None)
Quarter: 2009Q1

REPORT INFORMATION
  Report Type: 
  Country: None (occurrence: None)
  Receive Date: 20090218
  Receipt Date: 20090210
  Transmission Date: 20090719
  Serious: Yes (Hospitalization)
  Sender: FDA-Public Use
  Company Number: PHHY2009MX04966

PATIENT
  Sex: Male

DRUGS (3)
  1. DIOVAN HCT [Suspect]
     Indication: HYPERTENSION
     Dosage: 160/25 MG PER DAY
     Route: 048
     Dates: start: 20071101, end: 20090105
  2. EUTIROX [Concomitant]
  3. PLAVIX [Concomitant]

REACTIONS (4)
  - ENDOSCOPY [None]
  - GALLBLADDER DISORDER [None]
  - HAEMATEMESIS [None]
  - ULCER [None]
